FAERS Safety Report 24201034 (Version 1)
Quarter: 2024Q3

REPORT INFORMATION
  Report Type: Spontaneous
  Country: US (occurrence: None)
  Receive Date: 20240809
  Receipt Date: 20240809
  Transmission Date: 20241016
  Serious: Yes (Life-Threatening, Hospitalization, Disabling)
  Sender: Public
  Company Number: None

PATIENT
  Age: 68 Year
  Sex: Male
  Weight: 76.2 kg

DRUGS (19)
  1. METOPROLOL [Suspect]
     Active Substance: METOPROLOL
     Indication: Product used for unknown indication
     Dates: start: 2005
  2. PRAVASTATIN [Suspect]
     Active Substance: PRAVASTATIN
  3. ZETIA [Suspect]
     Active Substance: EZETIMIBE
  4. SULFASALAZINE [Suspect]
     Active Substance: SULFASALAZINE
  5. METHOTREXATE [Suspect]
     Active Substance: METHOTREXATE
  6. KENALOG [Suspect]
     Active Substance: TRIAMCINOLONE ACETONIDE
  7. FORTEO [Suspect]
     Active Substance: TERIPARATIDE
  8. ENBREL [Suspect]
     Active Substance: BENZYL ALCOHOL\ETANERCEPT
  9. ELIQUIS [Suspect]
     Active Substance: APIXABAN
  10. BRILINTA [Suspect]
     Active Substance: TICAGRELOR
  11. WARFARIN [Suspect]
     Active Substance: WARFARIN
  12. DUPIXENT [Suspect]
     Active Substance: DUPILUMAB
  13. XARELTO [Concomitant]
     Active Substance: RIVAROXABAN
  14. thera cal d [Concomitant]
  15. VITAMINS [Concomitant]
     Active Substance: VITAMINS
  16. CYANOCOBALAMIN\FOLIC ACID [Concomitant]
     Active Substance: CYANOCOBALAMIN\FOLIC ACID
  17. CELEBREX [Concomitant]
     Active Substance: CELECOXIB
  18. WARFARIN [Concomitant]
     Active Substance: WARFARIN
  19. adult tablets [Concomitant]

REACTIONS (7)
  - Deep vein thrombosis [None]
  - Respiratory disorder [None]
  - Rash [None]
  - Coronary artery occlusion [None]
  - Osteoporosis [None]
  - Haemoptysis [None]
  - Arthralgia [None]

NARRATIVE: CASE EVENT DATE: 20050101
